FAERS Safety Report 8966094 (Version 2)
Quarter: 2013Q1

REPORT INFORMATION
  Report Type: Report from Study
  Country: US (occurrence: US)
  Receive Date: 20121214
  Receipt Date: 20130118
  Transmission Date: 20140127
  Serious: Yes (Hospitalization)
  Sender: FDA-Public Use
  Company Number: US-ABBOTT-12P-163-1018072-00

PATIENT
  Age: 73 None
  Sex: Male
  Weight: 84.44 kg

DRUGS (6)
  1. HUMIRA [Suspect]
     Indication: RHEUMATOID ARTHRITIS
     Dates: start: 2005
  2. METHOTREXATE [Concomitant]
     Indication: RHEUMATOID ARTHRITIS
  3. SALSALATE [Concomitant]
     Indication: RHEUMATOID ARTHRITIS
  4. VITAMINS [Concomitant]
     Indication: VITAMIN SUPPLEMENTATION
  5. ASPIRIN [Concomitant]
     Indication: CARDIOVASCULAR EVENT PROPHYLAXIS
  6. CALCIUM [Concomitant]
     Indication: MINERAL SUPPLEMENTATION

REACTIONS (8)
  - Pulmonary thrombosis [Recovered/Resolved]
  - Surgery [Recovered/Resolved]
  - Spinal osteoarthritis [Unknown]
  - Pain [Unknown]
  - Vitamin B12 deficiency [Not Recovered/Not Resolved]
  - Osteoarthritis [Recovering/Resolving]
  - Arthralgia [Not Recovered/Not Resolved]
  - Lacrimation increased [Recovered/Resolved]
